FAERS Safety Report 8795354 (Version 1)
Quarter: 2012Q4

REPORT INFORMATION
  Report Type: 
  Country: ES (occurrence: ES)
  Receive Date: 20120917
  Receipt Date: 20120917
  Transmission Date: 20130627
  Serious: Yes (Other)
  Sender: FDA-Public Use
  Company Number: ES-VERTEX PHARMACEUTICAL INC.-000000000000000791

PATIENT
  Sex: Male

DRUGS (6)
  1. INCIVO [Suspect]
     Indication: HEPATITIS C
     Dosage: 2250 mg, qd
     Route: 048
     Dates: start: 20120509, end: 20120522
  2. INTERFERON ALFA-2B [Suspect]
     Indication: HEPATITIS C
     Dosage: UNK
     Route: 065
     Dates: start: 20120509, end: 20120522
  3. RIBAVIRIN [Concomitant]
     Indication: HEPATITIS C
     Dates: start: 20120509, end: 20120522
  4. METFORMIN [Concomitant]
     Indication: DIABETES MELLITUS
  5. SECALIP [Concomitant]
     Indication: DYSLIPIDAEMIA
  6. AMARYL [Concomitant]
     Indication: DIABETES MELLITUS

REACTIONS (2)
  - Rash [Recovered/Resolved]
  - Vasculitis [Recovered/Resolved]
